FAERS Safety Report 9555557 (Version 1)
Quarter: 2013Q3

REPORT INFORMATION
  Report Type: Spontaneous
  Country: US (occurrence: US)
  Receive Date: 20130926
  Receipt Date: 20130926
  Transmission Date: 20140515
  Serious: No
  Sender: FDA-Public Use
  Company Number: US-TEVA-434413USA

PATIENT
  Sex: Female

DRUGS (4)
  1. PROAIR HFA [Suspect]
     Indication: COUGH
  2. PROAIR HFA [Suspect]
     Indication: WHEEZING
  3. ADVAIR [Concomitant]
     Indication: COUGH
  4. ADVAIR [Concomitant]
     Indication: WHEEZING

REACTIONS (1)
  - Cough [Not Recovered/Not Resolved]
